FAERS Safety Report 18183408 (Version 1)
Quarter: 2020Q3

REPORT INFORMATION
  Report Type: Report from Study
  Country: GB (occurrence: GB)
  Receive Date: 20200822
  Receipt Date: 20200822
  Transmission Date: 20201103
  Serious: Yes (Other)
  Sender: FDA-Public Use
  Company Number: NVSC2020GB066610

PATIENT
  Sex: Male

DRUGS (2)
  1. ERELZI [Suspect]
     Active Substance: ETANERCEPT-SZZS
     Dosage: 50 MG, WEEKLY
     Route: 058
     Dates: start: 20190115
  2. ERELZI [Suspect]
     Active Substance: ETANERCEPT-SZZS
     Indication: RHEUMATOID ARTHRITIS
     Dosage: 50 MG, QW
     Route: 058

REACTIONS (7)
  - Back pain [Unknown]
  - Arthralgia [Unknown]
  - Mobility decreased [Unknown]
  - Gait disturbance [Unknown]
  - Parkinson^s disease [Unknown]
  - Osteoarthritis [Unknown]
  - Pneumonia [Recovered/Resolved]
